FAERS Safety Report 6042494-4 (Version None)
Quarter: 2009Q1

REPORT INFORMATION
  Report Type: 
  Country: None (occurrence: None)
  Receive Date: 20090116
  Receipt Date: 20090109
  Transmission Date: 20090719
  Serious: Yes (Hospitalization)
  Sender: FDA-Public Use
  Company Number: US-GENENTECH-275295

PATIENT
  Sex: Male
  Weight: 91 kg

DRUGS (1)
  1. RITUXIMAB [Suspect]
     Indication: NON-HODGKIN'S LYMPHOMA
     Dosage: 765 UNK, Q3W
     Route: 042
     Dates: start: 20081110

REACTIONS (1)
  - DEHYDRATION [None]
